FAERS Safety Report 6246290-4 (Version None)
Quarter: 2009Q2

REPORT INFORMATION
  Report Type: 
  Country: None (occurrence: None)
  Receive Date: 20090626
  Receipt Date: 20090619
  Transmission Date: 20091009
  Serious: Yes (Death, Hospitalization)
  Sender: FDA-Public Use
  Company Number: PHHO2009BE07743

PATIENT
  Sex: Female

DRUGS (33)
  1. CYCLOSPORINE [Suspect]
     Indication: RENAL TRANSPLANT
     Dosage: 300 MG, QD
     Route: 048
     Dates: start: 20030920
  2. CYCLOSPORINE [Suspect]
     Dosage: 75 MG, QD
     Route: 048
     Dates: end: 20040117
  3. MYCOPHENOLATE MOFETIL [Suspect]
     Indication: RENAL TRANSPLANT
     Dosage: 500 MG, BID
     Route: 048
     Dates: start: 20030920
  4. MYCOPHENOLATE MOFETIL [Suspect]
     Dosage: 1 G, BID
     Route: 048
     Dates: start: 20030921
  5. MYCOPHENOLATE MOFETIL [Suspect]
     Dosage: 500 MG, TID
     Route: 048
     Dates: start: 20031225
  6. MYCOPHENOLATE MOFETIL [Suspect]
     Dosage: 1 G, BID
     Route: 048
     Dates: start: 20031226
  7. MYCOPHENOLATE MOFETIL [Suspect]
     Dosage: 500 MG, TID
     Route: 048
     Dates: start: 20040110
  8. MYCOPHENOLATE MOFETIL [Suspect]
     Dosage: 500 MG, BID
     Route: 048
     Dates: start: 20040112
  9. MYCOPHENOLATE MOFETIL [Suspect]
     Dosage: 500 MG, TID
     Route: 048
     Dates: start: 20040114
  10. MYCOPHENOLATE MOFETIL [Suspect]
     Dosage: 500 MG, BID
     Route: 048
     Dates: start: 20040116, end: 20040117
  11. MEDROL [Suspect]
     Indication: RENAL TRANSPLANT
     Dosage: 40 MG, QD
     Route: 042
     Dates: start: 20030922, end: 20030922
  12. MEDROL [Suspect]
     Dosage: 32 MG, QD
     Route: 048
     Dates: start: 20030923
  13. MEDROL [Suspect]
     Dosage: 10 MG, QD
     Route: 048
     Dates: end: 20040117
  14. SOLU-MEDROL [Suspect]
     Indication: RENAL TRANSPLANT
     Dosage: 500 MG, QD
     Route: 042
     Dates: start: 20030920, end: 20031229
  15. SOLU-CORTEF [Suspect]
     Indication: RENAL TRANSPLANT
     Dosage: 100 MG, QD
     Route: 042
     Dates: start: 20040115
  16. SOLU-CORTEF [Suspect]
     Dosage: 100 MG, QD
     Route: 042
     Dates: end: 20040117
  17. CALCIUM CARBONATE [Concomitant]
     Dosage: UNK
  18. LIPITOR [Concomitant]
     Dosage: UNK
     Dates: start: 20030903, end: 20040115
  19. DILTIAZEM HCL [Concomitant]
     Dosage: UNK
     Dates: start: 20030928, end: 20040115
  20. PRILOSEC [Concomitant]
     Dosage: UNK
  21. BETAHISTINE [Concomitant]
  22. BETASERC [Concomitant]
  23. SIBELIUM [Concomitant]
  24. FRAXIPARINE [Concomitant]
     Dosage: UNK
     Dates: start: 20030922
  25. HUMULIN R [Concomitant]
  26. INSULATARD [Concomitant]
  27. AUGMENTIN [Concomitant]
  28. BACTRIM DS [Concomitant]
  29. CEFACIDAL [Concomitant]
  30. ENOXAPARIN SODIUM [Concomitant]
  31. LASIX [Concomitant]
  32. ZOCOR [Concomitant]
  33. ZOVIRAX [Concomitant]

REACTIONS (24)
  - ABDOMINAL PAIN [None]
  - ABDOMINAL PAIN UPPER [None]
  - ANOREXIA [None]
  - BLOOD CREATININE INCREASED [None]
  - CALCULUS URETERIC [None]
  - CANDIDIASIS [None]
  - CYTOMEGALOVIRUS INFECTION [None]
  - DIABETES MELLITUS [None]
  - DYSPNOEA [None]
  - HYPERGLYCAEMIA [None]
  - INFECTION [None]
  - KETOACIDOSIS [None]
  - MALAISE [None]
  - METABOLIC ACIDOSIS [None]
  - NEPHROSTOMY [None]
  - POLYURIA [None]
  - PYELOCALIECTASIS [None]
  - PYELONEPHRITIS [None]
  - RENAL IMPAIRMENT [None]
  - RESPIRATION ABNORMAL [None]
  - SEPTIC SHOCK [None]
  - TRANSPLANT REJECTION [None]
  - URETERAL STENT INSERTION [None]
  - URETERIC OBSTRUCTION [None]
